FAERS Safety Report 4695446-0 (Version None)
Quarter: 2005Q2

REPORT INFORMATION
  Report Type: 
  Country: None (occurrence: None)
  Receive Date: 20050617
  Receipt Date: 20050617
  Transmission Date: 20051028
  Serious: Yes (Other)
  Sender: FDA-Public Use
  Company Number: None

PATIENT
  Age: 69 Year
  Sex: Male
  Weight: 78.7 kg

DRUGS (19)
  1. PROMETHAZINE [Suspect]
  2. LANOXIN [Concomitant]
  3. SIMETHICONE [Concomitant]
  4. ZOLPIDEM TARTRATE [Concomitant]
  5. METOPROLOL TARTRATE [Concomitant]
  6. METFORMINE HCL [Concomitant]
  7. VALSARTAN [Concomitant]
  8. LOVASTATIN [Concomitant]
  9. OMEPRAZOLE [Concomitant]
  10. CODEINE 30/ACETAMINOPHEN [Concomitant]
  11. POTASSIUM CHLORIDE [Concomitant]
  12. TRAMADOL HCL [Concomitant]
  13. PROMETHAZINE [Concomitant]
  14. NITROGLYCERIN [Concomitant]
  15. AMLODIPINE BESTYLATE [Concomitant]
  16. LISINOPRIL [Concomitant]
  17. CICLOPIROX OLAMINE [Concomitant]
  18. FLUNISOLIDE [Concomitant]
  19. TERBINAFINE HYDROCHLORIDE CREAM 1% [Concomitant]

REACTIONS (1)
  - DIZZINESS [None]
